FAERS Safety Report 5227064-X (Version None)
Quarter: 2007Q1

REPORT INFORMATION
  Report Type: 
  Country: None (occurrence: None)
  Receive Date: 20070201
  Receipt Date: 20070201
  Transmission Date: 20070707
  Serious: Yes (Disabling, Other)
  Sender: FDA-Public Use
  Company Number: None

PATIENT
  Age: 43 Year
  Sex: Female
  Weight: 49.8957 kg

DRUGS (2)
  1. AVELOX [Suspect]
     Indication: SINUSITIS
     Dosage: 200 MG DAILY ORAL
     Route: 048
     Dates: start: 20070125, end: 20070126
  2. LEVOXYL [Concomitant]

REACTIONS (6)
  - GAIT DISTURBANCE [None]
  - HYPOAESTHESIA [None]
  - ILL-DEFINED DISORDER [None]
  - IMPAIRED WORK ABILITY [None]
  - MOTOR DYSFUNCTION [None]
  - PARAESTHESIA [None]
